FAERS Safety Report 9200333 (Version 1)
Quarter: 2013Q1

REPORT INFORMATION
  Report Type: Spontaneous
  Country: US (occurrence: US)
  Receive Date: 20130329
  Receipt Date: 20130329
  Transmission Date: 20140127
  Serious: No
  Sender: FDA-Public Use
  Company Number: US-GLAXOSMITHKLINE-A0993370A

PATIENT
  Age: 46 Year
  Sex: Female
  Weight: 54.03 kg

DRUGS (8)
  1. BENLYSTA [Suspect]
     Indication: SYSTEMIC LUPUS ERYTHEMATOSUS
     Route: 042
     Dates: start: 20120501
  2. BENLYSTA [Suspect]
     Dates: start: 20120828
  3. PREDNISONE [Concomitant]
     Dosage: 10MG PER DAY
  4. TRAMADOL [Concomitant]
  5. ZOLPIDEM [Concomitant]
  6. DEPAKOTE [Concomitant]
  7. TYLENOL WITH CODEINE NO.3 [Concomitant]
  8. TRANEXAMIC ACID [Concomitant]

REACTIONS (8)
  - Weight decreased [Not Recovered/Not Resolved]
  - Decreased appetite [Not Recovered/Not Resolved]
  - Arthralgia [Not Recovered/Not Resolved]
  - Visual acuity reduced [Not Recovered/Not Resolved]
  - Vomiting [Not Recovered/Not Resolved]
  - Nausea [Not Recovered/Not Resolved]
  - Diarrhoea [Not Recovered/Not Resolved]
  - Condition aggravated [Not Recovered/Not Resolved]
